FAERS Safety Report 6341741-9 (Version None)
Quarter: 2009Q3

REPORT INFORMATION
  Report Type: 
  Country: None (occurrence: None)
  Receive Date: 20090904
  Receipt Date: 20090824
  Transmission Date: 20100115
  Serious: Yes (Other)
  Sender: FDA-Public Use
  Company Number: JP-PFIZER INC-2009253419

PATIENT
  Age: 73 Year

DRUGS (3)
  1. MYCOBUTIN [Suspect]
     Indication: MYCOBACTERIAL INFECTION
     Dosage: 300 MG, 1X/DAY
     Route: 048
     Dates: start: 20090708, end: 20090729
  2. ESANBUTOL [Concomitant]
     Dosage: UNK
     Route: 048
     Dates: start: 20081105, end: 20090812
  3. LEVOFLOXACIN [Concomitant]
     Dosage: UNK
     Route: 048
     Dates: start: 20081203, end: 20090812

REACTIONS (2)
  - ERYTHEMA MULTIFORME [None]
  - VISION BLURRED [None]
